FAERS Safety Report 25347992 (Version 3)
Quarter: 2025Q2

REPORT INFORMATION
  Report Type: Report from Study
  Country: BR (occurrence: BR)
  Receive Date: 20250522
  Receipt Date: 20250616
  Transmission Date: 20250717
  Serious: Yes (Hospitalization)
  Sender: TAKEDA
  Company Number: BR-TAKEDA-2025TUS047722

PATIENT
  Age: 47 Year
  Sex: Male
  Weight: 58 kg

DRUGS (3)
  1. VEDOLIZUMAB [Suspect]
     Active Substance: VEDOLIZUMAB
     Indication: Colitis ulcerative
  2. DIPYRONE [Concomitant]
     Active Substance: DIPYRONE
     Indication: Pain
  3. BUTYLSCOPOLAMINE BROMIDE [Concomitant]
     Active Substance: BUTYLSCOPOLAMINE BROMIDE
     Indication: Pain

REACTIONS (13)
  - Feeding disorder [Recovering/Resolving]
  - Malaise [Recovered/Resolved]
  - Asthenia [Not Recovered/Not Resolved]
  - Inappropriate schedule of product administration [Recovered/Resolved]
  - Weight decreased [Not Recovered/Not Resolved]
  - Blood pressure abnormal [Unknown]
  - Taste disorder [Unknown]
  - Apathy [Unknown]
  - Decreased appetite [Unknown]
  - Frequent bowel movements [Unknown]
  - Heart rate increased [Unknown]
  - Nausea [Unknown]
  - Fatigue [Unknown]

NARRATIVE: CASE EVENT DATE: 20250401
